FAERS Safety Report 13289981 (Version 1)
Quarter: 2017Q1

REPORT INFORMATION
  Report Type: Report from Study
  Country: US (occurrence: US)
  Receive Date: 20170302
  Receipt Date: 20170302
  Transmission Date: 20170428
  Serious: Yes (Hospitalization)
  Sender: FDA-Public Use
  Company Number: US-PFIZER INC-2017086041

PATIENT
  Age: 79 Year
  Sex: Female

DRUGS (2)
  1. IBRANCE [Suspect]
     Active Substance: PALBOCICLIB
     Dosage: 75 MG, CYCLIC (DAILY FOR DAY 1-DAY 21 FOLLOWED BY 7 DAYS OFF, EVERY 28 DAYS)
     Route: 048
     Dates: start: 20161001
  2. IBRANCE [Suspect]
     Active Substance: PALBOCICLIB
     Indication: BREAST CANCER
     Dosage: 100 MG, CYCLIC (DAILY FOR DAY 1-DAY 21 FOLLOWED BY 7 DAYS OFF, EVERY 28 DAYS)
     Route: 048
     Dates: start: 20151207, end: 20160703

REACTIONS (3)
  - Bone marrow failure [Unknown]
  - Hypotension [Unknown]
  - Infection [Unknown]
